FAERS Safety Report 4735742-1 (Version None)
Quarter: 2005Q3

REPORT INFORMATION
  Report Type: 
  Country: None (occurrence: None)
  Receive Date: 20050801
  Receipt Date: 20050801
  Transmission Date: 20060218
  Serious: Yes (Life-Threatening, Hospitalization)
  Sender: FDA-Public Use
  Company Number: None

PATIENT
  Age: 34 Year
  Sex: Female
  Weight: 62.5964 kg

DRUGS (1)
  1. LITHIUM SR [Suspect]
     Indication: BIPOLAR DISORDER
     Dosage: 450 MG PO TID
     Route: 048
     Dates: start: 20040801, end: 20050401

REACTIONS (6)
  - DIZZINESS [None]
  - FATIGUE [None]
  - NAUSEA [None]
  - THERAPEUTIC AGENT TOXICITY [None]
  - TREMOR [None]
  - WEIGHT DECREASED [None]
